FAERS Safety Report 8485818 (Version 8)
Quarter: 2012Q4

REPORT INFORMATION
  Report Type: 
  Country: US (occurrence: US)
  Receive Date: 20120330
  Receipt Date: 20121002
  Transmission Date: 20130627
  Serious: Yes (Hospitalization, Disabling, Other)
  Sender: FDA-Public Use
  Company Number: US-009507513-1203USA03307

PATIENT

DRUGS (10)
  1. FOSAMAX [Suspect]
     Indication: MENOPAUSE
     Dosage: 70 mg, QW
     Route: 048
     Dates: start: 200408, end: 20060126
  2. FOSAMAX [Suspect]
     Indication: OSTEOPENIA
  3. BONIVA [Suspect]
     Indication: MENOPAUSE
     Dosage: 150 mg, QM
     Dates: start: 20060126, end: 201104
  4. BONIVA [Suspect]
     Indication: OSTEOPENIA
  5. GLUCOSAMINE [Concomitant]
     Indication: OSTEOARTHRITIS
     Dosage: 1500 mg, qd
  6. CHONDROITIN SULFATE SODIUM (+) GLUCOSAMINE SULFATE [Concomitant]
     Indication: OSTEOARTHRITIS
  7. CELEBREX [Concomitant]
     Indication: OSTEOARTHRITIS
     Dosage: 200 mg, qd
  8. ALEVE [Concomitant]
     Indication: OSTEOARTHRITIS
     Dates: start: 20080612
  9. CALCIUM (UNSPECIFIED) [Concomitant]
     Indication: OSTEOPENIA
  10. VITAMIN D (UNSPECIFIED) [Concomitant]
     Indication: OSTEOPENIA

REACTIONS (81)
  - Femur fracture [Not Recovered/Not Resolved]
  - Low turnover osteopathy [Not Recovered/Not Resolved]
  - Osteoporosis [Not Recovered/Not Resolved]
  - Multiple fractures [Not Recovered/Not Resolved]
  - Haemorrhage [Unknown]
  - Adverse event [Unknown]
  - Hypotension [Unknown]
  - Upper gastrointestinal haemorrhage [Recovering/Resolving]
  - Anaemia [Unknown]
  - Femur fracture [Not Recovered/Not Resolved]
  - Intramedullary rod insertion [Unknown]
  - Melaena [Unknown]
  - Dyspepsia [Unknown]
  - Gastritis [Unknown]
  - Liver tenderness [Unknown]
  - Drug dispensing error [Unknown]
  - Depression [Not Recovered/Not Resolved]
  - Gait disturbance [Not Recovered/Not Resolved]
  - Musculoskeletal disorder [Not Recovered/Not Resolved]
  - Infection [Unknown]
  - Pain [Unknown]
  - Tendonitis [Unknown]
  - Scoliosis [Unknown]
  - Intervertebral disc degeneration [Unknown]
  - Exostosis [Unknown]
  - Tendon injury [Unknown]
  - Crystal arthropathy [Unknown]
  - Temporomandibular joint syndrome [Unknown]
  - Tendonitis [Unknown]
  - Cellulitis [Unknown]
  - Polychondritis [Unknown]
  - VIIth nerve paralysis [Unknown]
  - Hepatitis acute [Recovered/Resolved]
  - Groin pain [Unknown]
  - Bursitis [Unknown]
  - Spondylitis [Unknown]
  - Somnolence [Unknown]
  - Weight increased [Unknown]
  - Nephrolithiasis [Unknown]
  - Haematochezia [Unknown]
  - Haemorrhoids [Unknown]
  - Pancreatic cyst [Unknown]
  - Foot deformity [Unknown]
  - Hypercholesterolaemia [Unknown]
  - Rotator cuff syndrome [Unknown]
  - Bone disorder [Unknown]
  - Medication error [Unknown]
  - Tooth disorder [Not Recovered/Not Resolved]
  - Sinus disorder [Unknown]
  - Pyelonephritis [Unknown]
  - Nodal osteoarthritis [Unknown]
  - Renal colic [Unknown]
  - Gastrointestinal haemorrhage [Unknown]
  - Electrocardiogram T wave inversion [Unknown]
  - Osteoporosis [Unknown]
  - Nephrolithiasis [Unknown]
  - Renal disorder [Unknown]
  - Postmenopause [Unknown]
  - Flank pain [Unknown]
  - Incisional drainage [Unknown]
  - Uterine dilation and curettage [Unknown]
  - Jaundice [Unknown]
  - Liver function test abnormal [Unknown]
  - Throat irritation [Unknown]
  - Chest discomfort [Unknown]
  - Muscular weakness [Unknown]
  - Joint dislocation [Unknown]
  - Pain in extremity [Unknown]
  - Off label use [Unknown]
  - Pruritus [Unknown]
  - Gastrooesophageal reflux disease [Unknown]
  - Arthralgia [Not Recovered/Not Resolved]
  - Back pain [Unknown]
  - Muscle spasms [Unknown]
  - Nausea [Unknown]
  - Diarrhoea [Unknown]
  - Constipation [Unknown]
  - Muscle spasms [Unknown]
  - Vomiting [Unknown]
  - Nausea [Unknown]
  - Arthralgia [Unknown]
